FAERS Safety Report 4640040-0 (Version None)
Quarter: 2005Q2

REPORT INFORMATION
  Report Type: 
  Country: None (occurrence: None)
  Receive Date: 20050418
  Receipt Date: 20060405
  Transmission Date: 20051028
  Serious: Yes (Hospitalization, Other)
  Sender: FDA-Public Use
  Company Number: 2005055608

PATIENT
  Sex: Female

DRUGS (5)
  1. ZOLOFT [Suspect]
     Indication: DEPRESSION
     Dosage: 150 MG (100 MG, 1.5 TABS DAILY), ORAL
     Route: 048
     Dates: start: 19980101, end: 20040101
  2. CLONAZEPAM [Concomitant]
  3. BUPROPION HYDROCHLORIDE [Concomitant]
  4. FLUOXETINE HCL [Concomitant]
  5. PAROXETINE HCL [Concomitant]

REACTIONS (5)
  - CRYING [None]
  - ECONOMIC PROBLEM [None]
  - EMOTIONAL DISTRESS [None]
  - PNEUMONIA [None]
  - SUICIDAL IDEATION [None]
